FAERS Safety Report 8834512 (Version 1)
Quarter: 2012Q4

REPORT INFORMATION
  Report Type: 
  Country: US (occurrence: US)
  Receive Date: 20121010
  Receipt Date: 20121010
  Transmission Date: 20130627
  Serious: No
  Sender: FDA-Public Use
  Company Number: US-ASTRAZENECA-2011SE34729

PATIENT
  Age: 58 Year
  Sex: Male

DRUGS (1)
  1. NEXIUM [Suspect]
     Route: 048

REACTIONS (5)
  - Hyperchlorhydria [Unknown]
  - Dyspnoea [Unknown]
  - Sleep disorder due to general medical condition, insomnia type [Unknown]
  - Gastrooesophageal reflux disease [Unknown]
  - Intentional drug misuse [Unknown]
